FAERS Safety Report 6518975-3 (Version None)
Quarter: 2009Q4

REPORT INFORMATION
  Report Type: 
  Country: None (occurrence: None)
  Receive Date: 20091228
  Receipt Date: 20091216
  Transmission Date: 20100525
  Serious: Yes (Hospitalization)
  Sender: FDA-Public Use
  Company Number: DE-ROCHE-675575

PATIENT
  Sex: Female
  Weight: 83.8 kg

DRUGS (7)
  1. MYCOPHENOLATE MOFETIL [Suspect]
     Route: 048
  2. ADVAGRAF [Suspect]
     Route: 048
     Dates: end: 20091023
  3. ADVAGRAF [Suspect]
     Dosage: REDUCED
     Route: 048
     Dates: start: 20091023
  4. PANTOPRAZOLE [Concomitant]
     Dosage: TDD: 2 UNITS
  5. BISOPROLOL [Concomitant]
     Dosage: TDD: 1 UNIT
  6. AMITRIPTYLINE HCL [Concomitant]
     Dosage: TDD: 1 UNIT; DRUG: AMITRYPLIN
  7. MAGNESIUM [Concomitant]

REACTIONS (2)
  - TRANSPLANT FAILURE [None]
  - URINARY TRACT INFECTION [None]
